FAERS Safety Report 8983156 (Version 1)
Quarter: 2012Q4

REPORT INFORMATION
  Report Type: 
  Country: US (occurrence: US)
  Receive Date: 20121212
  Receipt Date: 20121212
  Transmission Date: 20130627
  Serious: Yes (Death)
  Sender: FDA-Public Use
  Company Number: US-ASTELLAS-1110016

PATIENT
  Age: 76 Year
  Sex: Male

DRUGS (1)
  1. TARCEVA [Suspect]
     Indication: MALIGNANT RESPIRATORY TRACT NEOPLASM
     Route: 048
     Dates: start: 20051026, end: 20060515

REACTIONS (3)
  - Disease progression [Fatal]
  - Rash [Recovering/Resolving]
  - Diarrhoea [Recovering/Resolving]
